FAERS Safety Report 8973056 (Version 1)
Quarter: 2012Q4

REPORT INFORMATION
  Report Type: 
  Country: DE (occurrence: DE)
  Receive Date: 20121219
  Receipt Date: 20121219
  Transmission Date: 20130627
  Serious: Yes (Hospitalization)
  Sender: FDA-Public Use
  Company Number: DE-ELI_LILLY_AND_COMPANY-DE201212001580

PATIENT
  Sex: Male

DRUGS (3)
  1. FORSTEO [Suspect]
     Indication: OSTEOPOROSIS
     Dosage: 1 DF, qd
     Route: 058
     Dates: start: 20120320
  2. FORSTEO [Suspect]
     Dosage: 1 DF, qd
     Route: 058
  3. CORTISONE [Concomitant]

REACTIONS (3)
  - Inflammation [Unknown]
  - Fall [Not Recovered/Not Resolved]
  - Skeletal injury [Not Recovered/Not Resolved]
